FAERS Safety Report 9407944 (Version 1)
Quarter: 2014Q2

REPORT INFORMATION
  Report Type: Spontaneous
  Country: US (occurrence: None)
  Receive Date: 20130717
  Receipt Date: 20130717
  Transmission Date: 20141212
  Serious: Yes (Hospitalization)
  Sender: FDA-Public Use
  Company Number: None

PATIENT
  Age: 32 Year
  Sex: Female
  Weight: 64.86 kg

DRUGS (2)
  1. NICOTROL INHALER [Suspect]
     Indication: SMOKING CESSATION THERAPY
     Dosage: 10MG CARTRGIDGE (4-12/DAY
     Dates: start: 20130315, end: 20130320
  2. METHADONE [Concomitant]

REACTIONS (3)
  - Low birth weight baby [None]
  - Drug withdrawal syndrome neonatal [None]
  - Exposure during pregnancy [None]
